FAERS Safety Report 8561291-9 (Version None)
Quarter: 2012Q3

REPORT INFORMATION
  Report Type: 
  Country: None (occurrence: None)
  Receive Date: 20120802
  Receipt Date: 20080428
  Transmission Date: 20120928
  Serious: Yes (Other)
  Sender: FDA-Public Use
  Company Number: CO-PFIZER INC-2012184752

PATIENT
  Age: 67 Year
  Sex: Male

DRUGS (9)
  1. LIPITOR [Suspect]
     Indication: DYSLIPIDAEMIA
     Dosage: 10 MG, 1X/DAY
  2. LOSARTAN [Concomitant]
     Dosage: 100 MG, 2X/DAY
  3. METOPROLOL TARTRATE [Concomitant]
     Dosage: 50 MG, 1X/DAY
  4. GLIBENCLAMIDE [Concomitant]
     Dosage: 5 MG, 1X/DAY
  5. METOPROLOL TARTRATE [Concomitant]
     Dosage: 50 MG, 2X/DAY
  6. OLMESARTAN MEDOXOMIL AND HYDROCHLOROTHIZIDE [Suspect]
     Indication: HYPERTENSION
     Dosage: OLMESARTAN/HYDROCHLOROTHIAZIDE 20/12.5 MG 1X/DAY
  7. ACETYLSALICYLIC ACID [Concomitant]
     Dosage: 100 MG, 1X/DAY
  8. GLIBENCLAMIDE [Concomitant]
     Dosage: 5 MG, 2X/DAY
  9. HYDROCHLOROTHIAZIDE [Concomitant]
     Dosage: 25 MG, 1X/DAY

REACTIONS (2)
  - PAIN IN EXTREMITY [None]
  - HYPERTENSIVE EMERGENCY [None]
